FAERS Safety Report 7490032-1 (Version None)
Quarter: 2011Q2

REPORT INFORMATION
  Report Type: 
  Country: None (occurrence: None)
  Receive Date: 20110512
  Receipt Date: 20110427
  Transmission Date: 20111010
  Serious: Yes (Hospitalization, Other)
  Sender: FDA-Public Use
  Company Number: AUR-APL-2011-00254

PATIENT
  Age: 60 Year
  Sex: Female

DRUGS (14)
  1. ASPIRIN [Suspect]
     Dosage: 75MG-DAILY
  2. LYRICA [Suspect]
     Indication: GENERALISED ANXIETY DISORDER
     Dosage: 200MG-100MG IN AM/50MG MIDDAY/50MG IN PM
  3. PROMETHAZINE [Suspect]
     Indication: SLEEP DISORDER
     Dosage: 50MG
  4. PROMETHAZINE [Suspect]
     Indication: ANXIETY
     Dosage: 50MG
  5. ZOPICLONE [Suspect]
     Indication: SLEEP DISORDER
     Dosage: 3.75MG-QHS
  6. DOTHIEPIN HYDROCHLORIDE [Suspect]
     Indication: DEPRESSION
     Dosage: 50MG-DAILY
  7. DIAZEPAM [Suspect]
  8. LYRICA [Suspect]
     Indication: GENERALISED ANXIETY DISORDER
     Dosage: 75MG-TID
     Dates: start: 20100701, end: 20100801
  9. SERTRALINE HYDROCHLORIDE [Suspect]
     Dosage: 100-150MG
  10. LYRICA [Suspect]
     Indication: GENERALISED ANXIETY DISORDER
     Dosage: 50-TID
     Dates: start: 20100501
  11. LYRICA [Suspect]
     Indication: GENERALISED ANXIETY DISORDER
     Dosage: 100MG-TID
     Dates: end: 20100913
  12. CITALOPRAM HYDROBROMIDE [Suspect]
  13. SIMVASTATIN [Suspect]
     Dosage: 20MG-QHS
  14. ATENOLOL [Suspect]
     Dosage: 25MG-DAILY

REACTIONS (49)
  - INTENTIONAL OVERDOSE [None]
  - CONFUSIONAL STATE [None]
  - DEPRESSED LEVEL OF CONSCIOUSNESS [None]
  - DECREASED APPETITE [None]
  - DIARRHOEA [None]
  - VOMITING [None]
  - DISEASE RECURRENCE [None]
  - ADJUSTMENT DISORDER [None]
  - TENSION [None]
  - HYPOCHONDRIASIS [None]
  - MALAISE [None]
  - ANAEMIA [None]
  - TREATMENT NONCOMPLIANCE [None]
  - FALL [None]
  - IRRITABILITY [None]
  - URINARY TRACT INFECTION [None]
  - PANIC ATTACK [None]
  - ANXIETY [None]
  - MUSCLE ATROPHY [None]
  - HOSTILITY [None]
  - ACCIDENTAL OVERDOSE [None]
  - WEIGHT DECREASED [None]
  - HYPERHIDROSIS [None]
  - SOMATOFORM DISORDER [None]
  - LETHARGY [None]
  - ORAL MUCOSAL DISCOLOURATION [None]
  - MOOD SWINGS [None]
  - ANHEDONIA [None]
  - DRUG INEFFECTIVE [None]
  - MENTAL IMPAIRMENT [None]
  - DIZZINESS [None]
  - FAMILY STRESS [None]
  - MUSCLE TWITCHING [None]
  - INITIAL INSOMNIA [None]
  - NAUSEA [None]
  - DEPRESSION [None]
  - MIDDLE INSOMNIA [None]
  - THINKING ABNORMAL [None]
  - MYALGIA [None]
  - FEELING JITTERY [None]
  - MACROCYTOSIS [None]
  - AGGRESSION [None]
  - FATIGUE [None]
  - PAIN [None]
  - SUICIDE ATTEMPT [None]
  - CONDITION AGGRAVATED [None]
  - TREMOR [None]
  - AFFECTIVE DISORDER [None]
  - SYNCOPE [None]
